FAERS Safety Report 10869866 (Version 2)
Quarter: 2015Q1

REPORT INFORMATION
  Report Type: Spontaneous
  Country: US (occurrence: None)
  Receive Date: 20150223
  Receipt Date: 20150309
  Transmission Date: 20150721
  Serious: Yes (Hospitalization, Other)
  Sender: FDA-Public Use
  Company Number: 2015JUB00046

PATIENT
  Age: 66 Year
  Sex: Female
  Weight: 115.6 kg

DRUGS (6)
  1. TRACLEER [Suspect]
     Active Substance: BOSENTAN\BOSENTAN MONOHYDRATE
     Indication: PULMONARY ARTERIAL HYPERTENSION
  2. ADCIRCA [Suspect]
     Active Substance: TADALAFIL
     Indication: PULMONARY ARTERIAL HYPERTENSION
     Dates: start: 20140905
  3. ASPIRIN (ACETYLSALICYLIC ACID) [Concomitant]
     Active Substance: ASPIRIN
  4. PREDNISONE (PREDNISONE) [Suspect]
     Active Substance: PREDNISONE
     Indication: SCLERODERMA
  5. COUMADIN [Concomitant]
     Active Substance: WARFARIN SODIUM
  6. REMODULIN [Suspect]
     Active Substance: TREPROSTINIL
     Indication: PULMONARY HYPERTENSION
     Dosage: 0.040 UNK
     Route: 041
     Dates: start: 20110720

REACTIONS (9)
  - Blood glucose increased [None]
  - Scleroderma [None]
  - Dyspnoea exertional [None]
  - Musculoskeletal chest pain [None]
  - Hypotension [None]
  - Presyncope [None]
  - Lung infiltration [None]
  - Dizziness [None]
  - Transaminases increased [None]

NARRATIVE: CASE EVENT DATE: 20141218
